FAERS Safety Report 5285862-0 (Version None)
Quarter: 2007Q1

REPORT INFORMATION
  Report Type: 
  Country: None (occurrence: None)
  Receive Date: 20070329
  Receipt Date: 20070316
  Transmission Date: 20070707
  Serious: No
  Sender: FDA-Public Use
  Company Number: 231511K07USA

PATIENT
  Age: 52 Year
  Sex: Female

DRUGS (7)
  1. REBIF [Suspect]
     Indication: MULTIPLE SCLEROSIS
     Dosage: 44 MCG, 3 IN 1 WEEKS, SUBCUTANEOUS
     Route: 058
     Dates: start: 20061122
  2. NEXIUM [Concomitant]
  3. CYMBALTA [Concomitant]
  4. EVISTA [Concomitant]
  5. VYTORIN [Concomitant]
  6. LISINOPRIL (LISINOPRIL/00894001/) [Concomitant]
  7. TOPAMAX [Concomitant]

REACTIONS (1)
  - NO ADVERSE EFFECT [None]
